FAERS Safety Report 5567555-5 (Version None)
Quarter: 2007Q4

REPORT INFORMATION
  Report Type: 
  Country: None (occurrence: None)
  Receive Date: 20071219
  Receipt Date: 20071210
  Transmission Date: 20080405
  Serious: Yes (Disabling, Other)
  Sender: FDA-Public Use
  Company Number: GB-PFIZER INC-2007104805

PATIENT
  Age: 36 Year
  Sex: Female

DRUGS (5)
  1. CHANTIX [Suspect]
     Indication: SMOKING CESSATION THERAPY
     Route: 048
     Dates: start: 20071123, end: 20071123
  2. INDAPAMIDE [Concomitant]
     Route: 048
  3. PROPRANOLOL [Concomitant]
     Route: 048
  4. RIZATRIPTAN BENZOATE [Concomitant]
     Route: 048
  5. PAROXETINE HCL [Concomitant]
     Route: 048

REACTIONS (7)
  - CHILLS [None]
  - MUSCULOSKELETAL CHEST PAIN [None]
  - NAUSEA [None]
  - PALPITATIONS [None]
  - SINUS CONGESTION [None]
  - TINNITUS [None]
  - VISION BLURRED [None]
